FAERS Safety Report 4629177-X (Version None)
Quarter: 2005Q2

REPORT INFORMATION
  Report Type: 
  Country: None (occurrence: None)
  Receive Date: 20050404
  Receipt Date: 20050404
  Transmission Date: 20051028
  Serious: Yes (Other)
  Sender: FDA-Public Use
  Company Number: None

PATIENT
  Age: 59 Year
  Sex: Female
  Weight: 73.4827 kg

DRUGS (1)
  1. CLINDAMYCIN 300 MG CAPS [Suspect]
     Indication: ORAL INFECTION
     Dosage: 3 PILLS DAILY- 1 EVERY 8 HOURS FOR 10 DAYS (ORAL 047)
     Dates: start: 20020416, end: 20020426

REACTIONS (1)
  - CLOSTRIDIAL INFECTION [None]
